FAERS Safety Report 7781267-9 (Version None)
Quarter: 2011Q3

REPORT INFORMATION
  Report Type: 
  Country: None (occurrence: None)
  Receive Date: 20110923
  Receipt Date: 20110912
  Transmission Date: 20111222
  Serious: Yes (Other)
  Sender: FDA-Public Use
  Company Number: 1000019311

PATIENT
  Age: 36 Year
  Sex: Male
  Weight: 77 kg

DRUGS (4)
  1. ZOPICLONE (ZOPICLONE) (ZOPICLONE) [Concomitant]
  2. PRAVASTATINE (PRAVASTATINE) (PRAVASTATINE) [Concomitant]
  3. ESCITALOPRAM OXALATE [Suspect]
     Indication: BURNOUT SYNDROME
     Dosage: 20 MG (20 MG, 1 IN 1 D), ORAL
     Route: 048
     Dates: start: 20100107, end: 20100101
  4. ALPRAZOLARM (ALPRAZOLAM) (ALPRAZOLAM) [Concomitant]

REACTIONS (5)
  - INFERTILITY MALE [None]
  - MISCARRIAGE OF PARTNER [None]
  - SPERMATOZOA PROGRESSIVE MOTILITY DECREASED [None]
  - SPERM CONCENTRATION DECREASED [None]
  - SPERMATOZOA MORPHOLOGY ABNORMAL [None]
